FAERS Safety Report 11906733 (Version 1)
Quarter: 2016Q1

REPORT INFORMATION
  Report Type: Spontaneous
  Country: US (occurrence: None)
  Receive Date: 20160108
  Receipt Date: 20160108
  Transmission Date: 20160526
  Serious: Yes (Hospitalization)
  Sender: FDA-Public Use
  Company Number: None

PATIENT
  Age: 39 Year
  Sex: Female
  Weight: 64.9 kg

DRUGS (2)
  1. CARBOPLATIN. [Suspect]
     Active Substance: CARBOPLATIN
     Dates: end: 20151211
  2. TAXOL [Suspect]
     Active Substance: PACLITAXEL
     Dates: end: 20151211

REACTIONS (5)
  - Electrocardiogram QT prolonged [None]
  - Urosepsis [None]
  - Acute myocardial infarction [None]
  - Neutrophil count decreased [None]
  - Hypomagnesaemia [None]

NARRATIVE: CASE EVENT DATE: 20151221
